FAERS Safety Report 5985960-X (Version None)
Quarter: 2008Q4

REPORT INFORMATION
  Report Type: 
  Country: None (occurrence: None)
  Receive Date: 20081205
  Receipt Date: 20081205
  Transmission Date: 20090506
  Serious: No
  Sender: FDA-Public Use
  Company Number: None

PATIENT
  Age: 52 Year
  Sex: Male

DRUGS (11)
  1. RISPERDAL [Suspect]
     Indication: HYPERTENSION
     Dosage: 3 MG 1 MG 1 TAB HS AND 1 TAB AM
  2. RISPERDAL [Suspect]
     Indication: SPEECH DISORDER
     Dosage: 3 MG 1 MG 1 TAB HS AND 1 TAB AM
  3. CLINORIL [Suspect]
     Indication: ARTHRITIS
     Dosage: 150 MG 1 TAB BID
  4. CARDURA [Suspect]
     Indication: URINARY INCONTINENCE
     Dosage: 4 MG BID
  5. DITROPAN [Suspect]
     Indication: URINARY INCONTINENCE
     Dosage: 5 MG QID
  6. TYLENOL FOR ARTHRITIS [Suspect]
     Indication: ARTHRALGIA
     Dosage: 650 MG AM AND PM
  7. METHOTREXATE [Suspect]
     Dosage: 2.5 MG 9 TABS EVERY SAT.
  8. FOLIC ACID [Suspect]
     Dosage: 1 MG Q AM
  9. DIGOXIN [Suspect]
     Indication: HEART RATE IRREGULAR
     Dosage: 0.125 MG
  10. M.V.I. [Suspect]
     Dosage: 1 TAB Q AM
  11. PROSCAR [Suspect]

REACTIONS (36)
  - ABDOMINAL PAIN [None]
  - AGITATION [None]
  - ANXIETY [None]
  - ARRHYTHMIA [None]
  - ARTHRALGIA [None]
  - BACK PAIN [None]
  - CARDIAC DISORDER [None]
  - CONSTIPATION [None]
  - DIARRHOEA [None]
  - DIZZINESS [None]
  - DYSPEPSIA [None]
  - EXTRAPYRAMIDAL DISORDER [None]
  - FLATULENCE [None]
  - HEADACHE [None]
  - HEPATIC ENZYME INCREASED [None]
  - HYPERCHLORAEMIA [None]
  - HYPOPHOSPHATAEMIA [None]
  - HYPOTENSION [None]
  - INSOMNIA [None]
  - LEUKOPENIA [None]
  - MYALGIA [None]
  - NAUSEA [None]
  - NEUROLEPTIC MALIGNANT SYNDROME [None]
  - NEUTROPENIA [None]
  - OEDEMA [None]
  - OEDEMA PERIPHERAL [None]
  - PAIN [None]
  - PHARYNGITIS [None]
  - RASH [None]
  - RHINITIS [None]
  - SINUSITIS [None]
  - SOMNOLENCE [None]
  - UPPER RESPIRATORY TRACT INFECTION [None]
  - VERTIGO [None]
  - VISUAL IMPAIRMENT [None]
  - VOMITING [None]
